FAERS Safety Report 4698328-3 (Version None)
Quarter: 2005Q2

REPORT INFORMATION
  Report Type: 
  Country: None (occurrence: None)
  Receive Date: 20050623
  Receipt Date: 20050613
  Transmission Date: 20051028
  Serious: Yes (Death)
  Sender: FDA-Public Use
  Company Number: FR-BRISTOL-MYERS SQUIBB COMPANY-13004544

PATIENT
  Sex: Male

DRUGS (1)
  1. ABILIFY [Suspect]
     Indication: SCHIZOPHRENIA
     Dosage: INITIATED AT 10 MG/DAY
     Route: 048

REACTIONS (1)
  - COMPLETED SUICIDE [None]
